FAERS Safety Report 9796848 (Version 2)
Quarter: 2014Q1

REPORT INFORMATION
  Report Type: Report from Study
  Country: BE (occurrence: BE)
  Receive Date: 20140103
  Receipt Date: 20140103
  Transmission Date: 20141002
  Serious: Yes (Other)
  Sender: FDA-Public Use
  Company Number: BE-ABBVIE-13P-013-1128317-00

PATIENT
  Age: 71 Year
  Sex: Female

DRUGS (4)
  1. HUMIRA [Suspect]
     Indication: RHEUMATOID ARTHRITIS
     Route: 058
     Dates: start: 20100610, end: 20130504
  2. METHOTREXATE [Concomitant]
     Indication: RHEUMATOID ARTHRITIS
     Dates: start: 2003
  3. FOLIC ACID [Concomitant]
     Indication: RHEUMATOID ARTHRITIS
     Dates: start: 2003
  4. PANTOPRAZOL [Concomitant]
     Indication: OESOPHAGITIS
     Dates: start: 2008

REACTIONS (2)
  - Inguinal mass [Unknown]
  - B-cell lymphoma [Not Recovered/Not Resolved]
